FAERS Safety Report 9921146 (Version 2)
Quarter: 2014Q1

REPORT INFORMATION
  Report Type: Spontaneous
  Country: BR (occurrence: BR)
  Receive Date: 20140225
  Receipt Date: 20140225
  Transmission Date: 20141002
  Serious: Yes (Hospitalization)
  Sender: FDA-Public Use
  Company Number: BR-ASTRAZENECA-2013SE90583

PATIENT
  Sex: Male

DRUGS (5)
  1. SELOZOK [Suspect]
     Indication: HYPERTENSION
     Route: 048
     Dates: end: 201312
  2. SELOZOK [Suspect]
     Indication: TACHYCARDIA
     Route: 048
     Dates: end: 201312
  3. BRILINTA [Suspect]
     Route: 048
     Dates: start: 20131030
  4. ZANIDIP [Concomitant]
     Indication: HYPERTENSION
     Dates: end: 201312
  5. MICARDIS [Concomitant]
     Indication: HYPERTENSION
     Dates: end: 201312

REACTIONS (3)
  - Aortic aneurysm [Recovered/Resolved]
  - Renal impairment [Recovered/Resolved]
  - Blood pressure inadequately controlled [Recovered/Resolved]
